FAERS Safety Report 4761848-7 (Version None)
Quarter: 2005Q3

REPORT INFORMATION
  Report Type: 
  Country: None (occurrence: None)
  Receive Date: 20050906
  Receipt Date: 20050809
  Transmission Date: 20060218
  Serious: Yes (Life-Threatening, Hospitalization)
  Sender: FDA-Public Use
  Company Number: GB-ROCHE-413610

PATIENT
  Age: 64 Year
  Sex: Male

DRUGS (37)
  1. DACLIZUMAB [Suspect]
     Route: 042
     Dates: start: 20050807, end: 20050807
  2. DACLIZUMAB [Suspect]
     Route: 042
     Dates: start: 20050814, end: 20050814
  3. MYCOPHENOLATE MOFETIL [Suspect]
     Route: 042
     Dates: start: 20050807, end: 20050807
  4. MYCOPHENOLATE MOFETIL [Suspect]
     Route: 042
     Dates: start: 20050808, end: 20050812
  5. MYCOPHENOLATE MOFETIL [Suspect]
     Route: 048
     Dates: start: 20050815
  6. TACROLIMUS [Suspect]
     Route: 048
     Dates: start: 20050812, end: 20050812
  7. TACROLIMUS [Suspect]
     Dosage: DOSE ADJUSTED TO REACH PREDEFINED TARGET LEVELS.
     Route: 048
     Dates: start: 20050813
  8. HYDROCORTISONE [Suspect]
     Route: 065
     Dates: start: 20050807
  9. FENTANYL [Concomitant]
     Indication: SEDATION
     Dates: start: 20050807, end: 20050807
  10. PROPOFOL [Concomitant]
     Indication: SEDATION
     Dates: start: 20050807
  11. ATRACURIUM BESYLATE [Concomitant]
     Dates: start: 20050807, end: 20050807
  12. AUGMENTIN '125' [Concomitant]
     Dates: start: 20050807
  13. NOREPINEPHRINE [Concomitant]
     Dates: start: 20050807
  14. CALCIUM GLUCONATE [Concomitant]
     Dates: start: 20050807
  15. APROTININ [Concomitant]
     Dates: start: 20050807
  16. FUROSEMIDE [Concomitant]
     Dates: start: 20050807, end: 20050807
  17. AMPHOTERICIN B [Concomitant]
     Dates: start: 20050812
  18. CHLORHEXIDINE RINSE [Concomitant]
     Indication: PROPHYLAXIS
     Dates: start: 20050808, end: 20050813
  19. COTRIMOXAZOLE [Concomitant]
     Dates: start: 20050808
  20. ESOMEPRAZOLE [Concomitant]
     Dates: start: 20050809, end: 20050819
  21. FLUCONAZOLE [Concomitant]
     Dates: start: 20050807, end: 20050811
  22. FOLIC ACID [Concomitant]
     Dates: start: 20050818
  23. LANSOPRAZOLE [Concomitant]
     Dosage: TAKEN ON 08 AUGUST 2005. RE-STARTED 20 AUGUST 2005.
     Dates: start: 20050808
  24. MEROPENEM [Concomitant]
     Dates: start: 20050810, end: 20050815
  25. METOCLOPRAMIDE [Concomitant]
  26. MUPIROCIN [Concomitant]
     Indication: PROPHYLAXIS
     Dates: start: 20050807, end: 20050813
  27. ACYCLOVIR [Concomitant]
     Dates: start: 20050829
  28. GLUTAMIN [Concomitant]
     Dates: start: 20050826
  29. NYSTATIN [Concomitant]
     Dates: start: 20050829
  30. PARACETAMOL [Concomitant]
     Dates: start: 20050808
  31. PHOSPHATE SANDOZ [Concomitant]
     Dates: start: 20050818, end: 20050823
  32. PHYTOMENADIONE [Concomitant]
     Indication: VITAMIN K DEFICIENCY
     Dates: start: 20050812, end: 20050813
  33. SALINE NEBULIZER [Concomitant]
     Dates: start: 20050816
  34. SENNA [Concomitant]
     Indication: CONSTIPATION
     Dates: start: 20050809, end: 20050822
  35. TAZOCIN [Concomitant]
     Dates: start: 20050807, end: 20050810
  36. THIAMINE [Concomitant]
     Dates: start: 20050818, end: 20050819
  37. VITAMINS B + C [Concomitant]
     Indication: VITAMIN SUPPLEMENTATION
     Dates: start: 20050808

REACTIONS (5)
  - BLOOD POTASSIUM INCREASED [None]
  - CANDIDIASIS [None]
  - CARDIAC ARREST [None]
  - LUNG INFECTION PSEUDOMONAL [None]
  - VENTRICULAR TACHYCARDIA [None]
